FAERS Safety Report 9733055 (Version 1)
Quarter: 2013Q4

REPORT INFORMATION
  Report Type: Spontaneous
  Country: US (occurrence: None)
  Receive Date: 20131204
  Receipt Date: 20131204
  Transmission Date: 20140711
  Serious: Yes (Other)
  Sender: FDA-Public Use
  Company Number: None

PATIENT
  Age: 79 Year
  Sex: Male
  Weight: 64.86 kg

DRUGS (7)
  1. CLINDAMYCIN [Suspect]
     Indication: CELLULITIS
     Dosage: BY MOUTH
     Dates: start: 20131108, end: 20131108
  2. CLINDAMYCIN [Suspect]
     Dosage: BY MOUTH
     Dates: start: 20131108, end: 20131108
  3. CLINDAMYCIN [Suspect]
     Dosage: BY MOUTH
     Dates: start: 20131108, end: 20131108
  4. ATENOLOL [Concomitant]
  5. LASIX [Concomitant]
  6. METHADONE [Concomitant]
  7. COUMADIN [Concomitant]

REACTIONS (6)
  - Chemical burn of respiratory tract [None]
  - Epiglottitis [None]
  - Vocal cord disorder [None]
  - Foreign body [None]
  - Product physical issue [None]
  - Pain [None]
